FAERS Safety Report 6696263-2 (Version None)
Quarter: 2010Q2

REPORT INFORMATION
  Report Type: 
  Country: None (occurrence: None)
  Receive Date: 20100421
  Receipt Date: 20100408
  Transmission Date: 20101027
  Serious: Yes (Disabling)
  Sender: FDA-Public Use
  Company Number: 2010AL002242

PATIENT
  Age: 29 Year
  Sex: Female

DRUGS (6)
  1. VENLAFAXINE HYDROCHLORIDE TABLETS, 75MG (ATLLC) (VENLAFAXINE HYDROCHLO [Suspect]
     Indication: DEPRESSION
     Dosage: 75 MG;PO
     Route: 048
     Dates: start: 20100204, end: 20100311
  2. GABAPENTIN [Suspect]
  3. METHYLCELLULOSE [Concomitant]
  4. SODIUM PICOSULFATE [Concomitant]
  5. HYOSCINE HBR HYT [Concomitant]
  6. CITALOPRAM [Concomitant]

REACTIONS (2)
  - DYSARTHRIA [None]
  - HEMIPLEGIA [None]
